FAERS Safety Report 19526224 (Version 1)
Quarter: 2021Q3

REPORT INFORMATION
  Report Type: Spontaneous
  Country: US (occurrence: US)
  Receive Date: 20210713
  Receipt Date: 20210713
  Transmission Date: 20211014
  Serious: No
  Sender: FDA-Public Use
  Company Number: None

PATIENT
  Age: 83 Year
  Sex: Male

DRUGS (2)
  1. APIXABAN (APIXABAN 5MG TAB) [Suspect]
     Active Substance: APIXABAN
     Route: 048
     Dates: start: 20210420, end: 20210429
  2. ETODOLAC [ETODOLAC 200MG CAP] [Suspect]
     Active Substance: ETODOLAC
     Route: 048

REACTIONS (2)
  - Gastric ulcer [None]
  - Gastric haemorrhage [None]

NARRATIVE: CASE EVENT DATE: 20210429
